FAERS Safety Report 20775559 (Version 2)
Quarter: 2022Q2

REPORT INFORMATION
  Report Type: Report from Study
  Country: CA (occurrence: CA)
  Receive Date: 20220502
  Receipt Date: 20220504
  Transmission Date: 20220720
  Serious: Yes (Other)
  Sender: FDA-Public Use
  Company Number: CA-JNJFOC-20220452056

PATIENT
  Age: 7 Decade
  Sex: Female

DRUGS (1)
  1. REMICADE [Suspect]
     Active Substance: INFLIXIMAB
     Indication: Crohn^s disease
     Dosage: ON 26-APR-2022, THE PATIENT RECEIVED 100TH INFLIXIMAB INFUSION FOR DOSE OF 300 MG AND PARTIAL HARVEY
     Route: 042

REACTIONS (4)
  - Intestinal resection [Unknown]
  - Post procedural inflammation [Unknown]
  - Post procedural complication [Unknown]
  - Abdominal pain [Unknown]

NARRATIVE: CASE EVENT DATE: 20180101
